FAERS Safety Report 4847208-9 (Version None)
Quarter: 2005Q4

REPORT INFORMATION
  Report Type: 
  Country: None (occurrence: None)
  Receive Date: 20051205
  Receipt Date: 20051122
  Transmission Date: 20060501
  Serious: Yes (Hospitalization)
  Sender: FDA-Public Use
  Company Number: S05-USA-03626-01

PATIENT
  Age: 43 Year
  Sex: Female
  Weight: 88.4514 kg

DRUGS (2)
  1. LEXAPRO [Suspect]
     Indication: MIGRAINE
     Dosage: 20 MG QHS PO
     Route: 048
     Dates: start: 20050512, end: 20050101
  2. LEXAPRO [Suspect]
     Indication: PREMENSTRUAL SYNDROME
     Dosage: 20 MG QHS PO
     Route: 048
     Dates: start: 20050512, end: 20050101

REACTIONS (18)
  - ANAEMIA [None]
  - CHEST PAIN [None]
  - CONTUSION [None]
  - DIZZINESS [None]
  - ELECTROCARDIOGRAM ABNORMAL [None]
  - HYPERCHOLESTEROLAEMIA [None]
  - HYPOKALAEMIA [None]
  - INJURY [None]
  - JOINT SPRAIN [None]
  - LACERATION [None]
  - LOSS OF CONSCIOUSNESS [None]
  - MIGRAINE [None]
  - MITRAL VALVE INCOMPETENCE [None]
  - NERVOUS SYSTEM DISORDER [None]
  - PERIORBITAL HAEMATOMA [None]
  - ROAD TRAFFIC ACCIDENT [None]
  - SHOULDER PAIN [None]
  - SYNCOPE [None]
